FAERS Safety Report 15927555 (Version 2)
Quarter: 2019Q1

REPORT INFORMATION
  Report Type: Spontaneous
  Country: None (occurrence: US)
  Receive Date: 20190205
  Receipt Date: 20190219
  Transmission Date: 20190417
  Serious: No
  Sender: FDA-Public Use
  Company Number: US-ALLERGAN-1900006US

PATIENT
  Age: 10 Year
  Sex: Male

DRUGS (2)
  1. SKELETAL MUSCLE RELAXANT [Concomitant]
     Active Substance: UNSPECIFIED INGREDIENT
     Indication: MUSCLE SPASMS
     Dosage: UNK
     Route: 065
  2. BOTOX [Suspect]
     Active Substance: ONABOTULINUMTOXINA
     Indication: NEURODEGENERATIVE DISORDER
     Dosage: UNK, SINGLE
     Route: 030

REACTIONS (1)
  - Off label use [Unknown]
